FAERS Safety Report 16208690 (Version 3)
Quarter: 2020Q2

REPORT INFORMATION
  Report Type: Spontaneous
  Country: US (occurrence: US)
  Receive Date: 20190417
  Receipt Date: 20200414
  Transmission Date: 20200713
  Serious: Yes (Other)
  Sender: FDA-Public Use
  Company Number: US-GILEAD-2019-0402601

PATIENT
  Age: 35 Year
  Sex: Male

DRUGS (110)
  1. ATORVASTATIN [Concomitant]
     Active Substance: ATORVASTATIN
  2. OMEPRAZOLE. [Concomitant]
     Active Substance: OMEPRAZOLE
  3. SULFAMETHOXAZOLE AND TRIMETHOPRIM [Concomitant]
     Active Substance: SULFAMETHOXAZOLE\TRIMETHOPRIM
  4. CHLORPROMAZINE. [Concomitant]
     Active Substance: CHLORPROMAZINE
  5. MELATONIN [Concomitant]
     Active Substance: MELATONIN
  6. DOXYCYCLINE. [Concomitant]
     Active Substance: DOXYCYCLINE
  7. DOLUTEGRAVIR [Concomitant]
     Active Substance: DOLUTEGRAVIR
  8. AMMONIUM LACTATE. [Concomitant]
     Active Substance: AMMONIUM LACTATE
  9. ESCITALOPRAM [Concomitant]
     Active Substance: ESCITALOPRAM OXALATE
  10. MIRTAZAPINE. [Concomitant]
     Active Substance: MIRTAZAPINE
  11. PSYLLIUM HUSK POWDER [Concomitant]
  12. ALBUTEROL [SALBUTAMOL] [Concomitant]
     Active Substance: ALBUTEROL
  13. SODIUM FLUORIDE. [Concomitant]
     Active Substance: SODIUM FLUORIDE
  14. PREDNISONE. [Concomitant]
     Active Substance: PREDNISONE
  15. MECLIZINE HCL [Concomitant]
     Active Substance: MECLIZINE HYDROCHLORIDE
  16. HALOPERIDOL. [Concomitant]
     Active Substance: HALOPERIDOL
  17. CHLORHEXIDINE [Concomitant]
     Active Substance: CHLORHEXIDINE
  18. CALCIUM GLUCONATE. [Concomitant]
     Active Substance: CALCIUM GLUCONATE
  19. MIDAZOLAM. [Concomitant]
     Active Substance: MIDAZOLAM
  20. AMITRIPTYLINE HCL [Concomitant]
     Active Substance: AMITRIPTYLINE
  21. ACYCLOVIR SODIUM. [Concomitant]
     Active Substance: ACYCLOVIR SODIUM
  22. DILTIAZEM. [Concomitant]
     Active Substance: DILTIAZEM
  23. LAMIVUDINE. [Concomitant]
     Active Substance: LAMIVUDINE
  24. GUAIFENESIN AND DEXTROMETHORPHAN [Concomitant]
     Active Substance: DEXTROMETHORPHAN\GUAIFENESIN
  25. DOCUSATE [Concomitant]
     Active Substance: DOCUSATE
  26. TEMAZEPAM. [Concomitant]
     Active Substance: TEMAZEPAM
  27. PROMETHAZINE [Concomitant]
     Active Substance: PROMETHAZINE HYDROCHLORIDE
  28. TRAMADOL. [Concomitant]
     Active Substance: TRAMADOL
  29. HYDROCORTISONE. [Concomitant]
     Active Substance: HYDROCORTISONE
  30. DEXTROSE. [Concomitant]
     Active Substance: DEXTROSE
  31. FLUPHENAZINE [Concomitant]
     Active Substance: FLUPHENAZINE
  32. MORPHINE SULFATE. [Concomitant]
     Active Substance: MORPHINE SULFATE
  33. HYDROXYZINE [Concomitant]
     Active Substance: HYDROXYZINE HYDROCHLORIDE
  34. LIDOCAINE. [Concomitant]
     Active Substance: LIDOCAINE
  35. SINCALIDE. [Concomitant]
     Active Substance: SINCALIDE
  36. CARVEDILOL. [Concomitant]
     Active Substance: CARVEDILOL
  37. CYPROHEPTADINE. [Concomitant]
     Active Substance: CYPROHEPTADINE
  38. GABAPENTIN. [Concomitant]
     Active Substance: GABAPENTIN
  39. WITCH HAZEL [HAMAMELIS VIRGINIANA EXTRACT] [Concomitant]
  40. OXYCODONE AND ACETAMINOPHEN [Concomitant]
     Active Substance: ACETAMINOPHEN\OXYCODONE HYDROCHLORIDE
  41. WARFARIN [Concomitant]
     Active Substance: WARFARIN
  42. DARUNAVIR [Concomitant]
     Active Substance: DARUNAVIR
  43. SODIUM BICARBONATE. [Concomitant]
     Active Substance: SODIUM BICARBONATE
  44. CEFDINIR. [Concomitant]
     Active Substance: CEFDINIR
  45. IRON SUCROSE [Concomitant]
     Active Substance: IRON SUCROSE
  46. ALUMINUM HYDROXIDE [ALUMINIUM HYDROXIDE] [Concomitant]
     Active Substance: ALUMINUM HYDROXIDE
  47. ASPIRIN (E.C.) [Concomitant]
     Active Substance: ASPIRIN
  48. CODEINE PHOSPHATE;PARACETAMOL [Concomitant]
     Active Substance: ACETAMINOPHEN\CODEINE PHOSPHATE
  49. LACTULOSE. [Concomitant]
     Active Substance: LACTULOSE
  50. SILVER SULFADIAZINE. [Concomitant]
     Active Substance: SILVER SULFADIAZINE
  51. DICLOFENAC [Concomitant]
     Active Substance: DICLOFENAC
  52. BUSPIRONE [Concomitant]
     Active Substance: BUSPIRONE HYDROCHLORIDE
  53. ACETAMINOPHEN. [Concomitant]
     Active Substance: ACETAMINOPHEN
  54. RITONAVIR. [Concomitant]
     Active Substance: RITONAVIR
  55. HEPARIN SODIUM PORCINE [Concomitant]
     Active Substance: HEPARIN SODIUM
  56. HYDROMORPHONE [Concomitant]
     Active Substance: HYDROMORPHONE
  57. SENNA [SENNOSIDE A+B] [Concomitant]
  58. TESTOSTERONE. [Concomitant]
     Active Substance: TESTOSTERONE
  59. IPRATROPIUM [Concomitant]
     Active Substance: IPRATROPIUM
  60. FAMOTIDINE. [Concomitant]
     Active Substance: FAMOTIDINE
  61. ABACAVIR. [Concomitant]
     Active Substance: ABACAVIR
  62. VIREAD [Suspect]
     Active Substance: TENOFOVIR DISOPROXIL FUMARATE
     Indication: HIV INFECTION
     Dosage: UNK
     Route: 048
     Dates: start: 201305, end: 201806
  63. FENTANYL. [Concomitant]
     Active Substance: FENTANYL
  64. SODIUM CHLORIDE. [Concomitant]
     Active Substance: SODIUM CHLORIDE
  65. ONDANSETRON [Concomitant]
     Active Substance: ONDANSETRON
  66. BISACODYL. [Concomitant]
     Active Substance: BISACODYL
  67. HYDRALAZINE [Concomitant]
     Active Substance: HYDRALAZINE HYDROCHLORIDE
  68. MAGNESIUM HYDROXIDE. [Concomitant]
     Active Substance: MAGNESIUM HYDROXIDE
  69. LACTOBACILLUS ACIDOPHILUS [Concomitant]
     Active Substance: LACTOBACILLUS ACIDOPHILUS
  70. DIAZEPAM. [Concomitant]
     Active Substance: DIAZEPAM
  71. LOPERAMIDE [Concomitant]
     Active Substance: LOPERAMIDE
  72. LEVOFLOXACIN. [Concomitant]
     Active Substance: LEVOFLOXACIN
  73. CEFTRIAXONE. [Concomitant]
     Active Substance: CEFTRIAXONE
  74. METRONIDAZOLE. [Concomitant]
     Active Substance: METRONIDAZOLE
  75. HYDROCODONE/ACETAMINOPHEN [Concomitant]
     Active Substance: ACETAMINOPHEN\HYDROCODONE
  76. PROPRANOLOL [Concomitant]
     Active Substance: PROPRANOLOL HYDROCHLORIDE
  77. PANTOPRAZOLE [Concomitant]
     Active Substance: PANTOPRAZOLE
  78. LACTATED RINGERS SOLUTION [Concomitant]
     Active Substance: CALCIUM CHLORIDE\POTASSIUM CHLORIDE\SODIUM CHLORIDE\SODIUM LACTATE
  79. DIPHENHYDRAMINE. [Concomitant]
     Active Substance: DIPHENHYDRAMINE
  80. OLANZAPINE. [Concomitant]
     Active Substance: OLANZAPINE
  81. AZITHROMYCIN ANHYDROUS. [Concomitant]
     Active Substance: AZITHROMYCIN ANHYDROUS
  82. BIOTENE [GLUCOSE OXIDASE;LACTOPEROXIDASE] [Concomitant]
  83. SEVELAMER CARBONATE. [Concomitant]
     Active Substance: SEVELAMER CARBONATE
  84. BISMUTH SUBSALICYLATE. [Concomitant]
     Active Substance: BISMUTH SUBSALICYLATE
  85. MINERAL OIL. [Concomitant]
     Active Substance: MINERAL OIL
  86. AMLODIPINE [Concomitant]
     Active Substance: AMLODIPINE BESYLATE
  87. SODIUM POLYSTYRENE SULFONATE. [Concomitant]
     Active Substance: SODIUM POLYSTYRENE SULFONATE
  88. VANCOMYCIN [Concomitant]
     Active Substance: VANCOMYCIN
  89. GUAIFENESIN. [Concomitant]
     Active Substance: GUAIFENESIN
  90. NICOTINE. [Concomitant]
     Active Substance: NICOTINE
  91. NEPHRO VITE RX [Concomitant]
     Active Substance: ASCORBIC ACID\BIOTIN\CALCIUM PANTOTHENATE\CYANOCOBALAMIN\FOLIC ACID\NIACINAMIDE\PYRIDOXINE HYDROCHLORIDE\RIBOFLAVIN\THIAMINE MONONITRATE
  92. METOPROLOL TARTRATE. [Concomitant]
     Active Substance: METOPROLOL TARTRATE
  93. ERGOCALCIFEROL. [Concomitant]
     Active Substance: ERGOCALCIFEROL
  94. METHYLPREDNISOLONE SODIUM SUCCINATE. [Concomitant]
     Active Substance: METHYLPREDNISOLONE SODIUM SUCCINATE
  95. QUETIAPINE. [Concomitant]
     Active Substance: QUETIAPINE
  96. TRAZODONE [Concomitant]
     Active Substance: TRAZODONE HYDROCHLORIDE
  97. MENTHOL. [Concomitant]
     Active Substance: MENTHOL
  98. POLYETHYLENE GLYCOL 3350. [Concomitant]
     Active Substance: POLYETHYLENE GLYCOL 3350
  99. CEFEPIME [Concomitant]
     Active Substance: CEFEPIME HYDROCHLORIDE
  100. INSULIN [Concomitant]
     Active Substance: INSULIN NOS
  101. OXYMETAZOLINE [Concomitant]
     Active Substance: OXYMETAZOLINE
  102. SIMETHICONE (DIMETHICONE) [Concomitant]
     Active Substance: DIMETHICONE
  103. COBICISTAT;DARUNAVIR [Concomitant]
     Active Substance: COBICISTAT\DARUNAVIR ETHANOLATE
  104. MEPERIDINE HCL [Concomitant]
     Active Substance: MEPERIDINE HYDROCHLORIDE
  105. ETRAVIRINE [Concomitant]
     Active Substance: ETRAVIRINE
  106. TRUVADA [Suspect]
     Active Substance: EMTRICITABINE\TENOFOVIR DISOPROXIL FUMARATE
     Indication: HIV INFECTION
     Dosage: UNK
     Route: 048
     Dates: start: 200909, end: 201105
  107. BUPROPION. [Concomitant]
     Active Substance: BUPROPION
  108. ATAZANAVIR. [Concomitant]
     Active Substance: ATAZANAVIR
  109. LANTHANUM CARBONATE. [Concomitant]
     Active Substance: LANTHANUM CARBONATE
  110. CLINDAMYCIN. [Concomitant]
     Active Substance: CLINDAMYCIN

REACTIONS (9)
  - Emotional distress [Not Recovered/Not Resolved]
  - Economic problem [Not Recovered/Not Resolved]
  - Tooth loss [Not Recovered/Not Resolved]
  - Bone density decreased [Unknown]
  - End stage renal disease [Not Recovered/Not Resolved]
  - Pain [Not Recovered/Not Resolved]
  - Renal failure [Not Recovered/Not Resolved]
  - Nephropathy [Not Recovered/Not Resolved]
  - Anxiety [Not Recovered/Not Resolved]

NARRATIVE: CASE EVENT DATE: 20130513
